FAERS Safety Report 18797160 (Version 2)
Quarter: 2021Q1

REPORT INFORMATION
  Report Type: Spontaneous
  Country: US (occurrence: US)
  Receive Date: 20210128
  Receipt Date: 20210306
  Transmission Date: 20210419
  Serious: Yes (Hospitalization)
  Sender: FDA-Public Use
  Company Number: US-ASTRAZENECA-2021A010547

PATIENT
  Age: 60 Year
  Sex: Male
  Weight: 61.2 kg

DRUGS (1)
  1. SYMBICORT [Suspect]
     Active Substance: BUDESONIDE\FORMOTEROL FUMARATE DIHYDRATE
     Indication: CHRONIC OBSTRUCTIVE PULMONARY DISEASE
     Dosage: 160/4.5 MCG, ON PUFF DAILY
     Route: 055
     Dates: start: 2011

REACTIONS (6)
  - Device delivery system issue [Unknown]
  - Pulmonary mass [Unknown]
  - Wrong technique in device usage process [Unknown]
  - Dyspnoea [Unknown]
  - Alopecia [Unknown]
  - Product dose omission issue [Unknown]

NARRATIVE: CASE EVENT DATE: 2018
